FAERS Safety Report 12977479 (Version 3)
Quarter: 2016Q4

REPORT INFORMATION
  Report Type: Report from Study
  Country: US (occurrence: US)
  Receive Date: 20161128
  Receipt Date: 20161230
  Transmission Date: 20170207
  Serious: Yes (Other)
  Sender: FDA-Public Use
  Company Number: US-GILEAD-2016-0243512

PATIENT
  Age: 71 Year
  Sex: Female

DRUGS (3)
  1. AMBRISENTAN [Suspect]
     Active Substance: AMBRISENTAN
     Indication: PRODUCT USED FOR UNKNOWN INDICATION
     Dosage: 5 MG, QD
     Route: 065
  2. ORENITRAM [Concomitant]
     Active Substance: TREPROSTINIL
  3. XARELTO [Concomitant]
     Active Substance: RIVAROXABAN

REACTIONS (12)
  - Upper respiratory tract infection [Unknown]
  - Gout [Not Recovered/Not Resolved]
  - Pyrexia [Unknown]
  - Peripheral swelling [Unknown]
  - Gastrointestinal disorder [Unknown]
  - Sinusitis [Unknown]
  - Nasopharyngitis [Unknown]
  - Constipation [Unknown]
  - Foot fracture [Unknown]
  - Cellulitis [Not Recovered/Not Resolved]
  - Dry mouth [Unknown]
  - Pain in extremity [Not Recovered/Not Resolved]
